FAERS Safety Report 9994571 (Version 1)
Quarter: 2014Q1

REPORT INFORMATION
  Report Type: Report from Study
  Country: CA (occurrence: CA)
  Receive Date: 20140311
  Receipt Date: 20140311
  Transmission Date: 20141002
  Serious: Yes (Death)
  Sender: FDA-Public Use
  Company Number: CA-009507513-1403CAN002983

PATIENT
  Age: 69 Year
  Sex: Female
  Weight: 55 kg

DRUGS (6)
  1. FOSAMAX [Suspect]
     Dosage: 70 MG, QW
     Route: 048
  2. ACLASTA [Suspect]
     Dosage: 5.0 MG, ONCE A YEAR
     Route: 042
  3. ACLASTA [Suspect]
     Dosage: 5 MG, UNK
     Route: 042
  4. CALCIUM (UNSPECIFIED) [Concomitant]
     Route: 065
  5. DIDROCAL [Concomitant]
     Route: 065
  6. FOSAVANCE [Concomitant]
     Dosage: UNK
     Route: 065

REACTIONS (2)
  - Alanine aminotransferase increased [Fatal]
  - Blood glucose increased [Fatal]
